FAERS Safety Report 9027816 (Version 1)
Quarter: 2013Q1

REPORT INFORMATION
  Report Type: Spontaneous
  Country: US (occurrence: US)
  Receive Date: 20130124
  Receipt Date: 20130124
  Transmission Date: 20140127
  Serious: Yes (Hospitalization)
  Sender: FDA-Public Use
  Company Number: US-RANBAXY-2013US-64271

PATIENT
  Age: 22 Year
  Sex: Female

DRUGS (1)
  1. VALACYCLOVIR [Suspect]
     Indication: INFLUENZA
     Dosage: UNK
     Route: 065

REACTIONS (3)
  - Vulvovaginal burning sensation [Unknown]
  - Vaginal mucosal blistering [Unknown]
  - Off label use [Unknown]
